FAERS Safety Report 10210070 (Version 1)
Quarter: 2014Q2

REPORT INFORMATION
  Report Type: Spontaneous
  Country: US (occurrence: US)
  Receive Date: 20140602
  Receipt Date: 20140602
  Transmission Date: 20141212
  Serious: Yes (Hospitalization)
  Sender: FDA-Public Use
  Company Number: US-JNJFOC-20140515604

PATIENT
  Sex: Female
  Weight: 77.11 kg

DRUGS (4)
  1. VISINE [Suspect]
     Route: 048
  2. VISINE [Suspect]
     Indication: POISONING
     Route: 048
  3. PREDNISONE [Concomitant]
     Indication: DYSPNOEA
     Route: 065
  4. ADVAIR [Concomitant]
     Indication: EMPHYSEMA
     Dosage: 3 MONTHS OR MORE
     Route: 065

REACTIONS (8)
  - Poisoning [Not Recovered/Not Resolved]
  - Amnesia [Not Recovered/Not Resolved]
  - Dyspnoea [Not Recovered/Not Resolved]
  - Nausea [Not Recovered/Not Resolved]
  - Tremor [Not Recovered/Not Resolved]
  - Anxiety [Not Recovered/Not Resolved]
  - Peripheral swelling [Not Recovered/Not Resolved]
  - Vision blurred [Not Recovered/Not Resolved]
